FAERS Safety Report 24642923 (Version 3)
Quarter: 2025Q1

REPORT INFORMATION
  Report Type: Spontaneous
  Country: US (occurrence: US)
  Receive Date: 20241120
  Receipt Date: 20250102
  Transmission Date: 20250409
  Serious: No
  Sender: BRISTOL-MYERS SQUIBB COMPANY
  Company Number: US-BRISTOL-MYERS SQUIBB COMPANY-2024-181625

PATIENT
  Age: 63 Year
  Sex: Female

DRUGS (2)
  1. SPRYCEL [Suspect]
     Active Substance: DASATINIB
     Indication: White blood cell count increased
     Route: 048
     Dates: start: 202405
  2. SPRYCEL [Suspect]
     Active Substance: DASATINIB
     Dosage: STRENGTH-50 MG
     Route: 048

REACTIONS (8)
  - Hypersensitivity [Unknown]
  - Ear pruritus [Unknown]
  - Pruritus [Unknown]
  - Off label use [Unknown]
  - Diarrhoea [Unknown]
  - Pain [Unknown]
  - Blood pressure increased [Unknown]
  - Renal disorder [Unknown]
